FAERS Safety Report 15324355 (Version 2)
Quarter: 2018Q3

REPORT INFORMATION
  Report Type: Spontaneous
  Country: NL (occurrence: NL)
  Receive Date: 20180828
  Receipt Date: 20180913
  Transmission Date: 20181010
  Serious: Yes (Death, Life-Threatening, Hospitalization)
  Sender: FDA-Public Use
  Company Number: NL-OCTA-LAS04818NL

PATIENT
  Age: 37 Year
  Sex: Female

DRUGS (3)
  1. PLATELETS [Suspect]
     Active Substance: HUMAN PLATELET, ALLOGENIC
     Indication: POSTPARTUM HAEMORRHAGE
     Dosage: 1 UNIT, PRODUCT CODE: E 6861V00
     Dates: start: 20180811, end: 20180811
  2. ERYTHROCYTES [Suspect]
     Active Substance: HUMAN RED BLOOD CELL
     Indication: POSTPARTUM HAEMORRHAGE
     Dosage: 5 UNITS
     Dates: start: 20180811, end: 20180811
  3. OMNIPLASMA [Suspect]
     Active Substance: HUMAN PLASMA
     Indication: POSTPARTUM HAEMORRHAGE
     Dosage: 2 UNITS
     Route: 042
     Dates: start: 20180811, end: 20180811

REACTIONS (6)
  - Hypoxia [Unknown]
  - Brain oedema [Unknown]
  - Dyspnoea [Unknown]
  - Cardiac arrest [Unknown]
  - Transfusion-related acute lung injury [Unknown]
  - Hypertension [Unknown]

NARRATIVE: CASE EVENT DATE: 201808
